FAERS Safety Report 6766689-7 (Version None)
Quarter: 2010Q2

REPORT INFORMATION
  Report Type: 
  Country: None (occurrence: None)
  Receive Date: 20100611
  Receipt Date: 20100604
  Transmission Date: 20101027
  Serious: Yes (Other)
  Sender: FDA-Public Use
  Company Number: IT-JNJFOC-20100602635

PATIENT
  Sex: Female

DRUGS (8)
  1. IMODIUM [Suspect]
     Indication: DIARRHOEA
     Dosage: 2 MG/ 3 DAILY
     Route: 048
  2. COUMADIN [Interacting]
     Indication: ATRIAL FIBRILLATION
     Dosage: 5 MG TABLET /36.25 MG WEEKLY
     Route: 048
  3. IDROCHINIDINA [Concomitant]
     Route: 065
  4. METFORMIN [Concomitant]
     Route: 065
  5. LASIX [Concomitant]
     Route: 065
  6. BISOPROLOL [Concomitant]
     Route: 065
  7. OLPRESS [Concomitant]
     Route: 065
  8. ROSUVASTATIN [Concomitant]
     Route: 065

REACTIONS (2)
  - DRUG INTERACTION [None]
  - INTERNATIONAL NORMALISED RATIO INCREASED [None]
